FAERS Safety Report 9675483 (Version 1)
Quarter: 2013Q4

REPORT INFORMATION
  Report Type: Spontaneous
  Country: US (occurrence: US)
  Receive Date: 20131107
  Receipt Date: 20131107
  Transmission Date: 20140711
  Serious: Yes (Death)
  Sender: FDA-Public Use
  Company Number: US-FRI-1000050824

PATIENT
  Sex: Female

DRUGS (1)
  1. NAMENDA [Suspect]
     Dosage: 10 MG

REACTIONS (1)
  - Death [Fatal]
